FAERS Safety Report 15503712 (Version 1)
Quarter: 2018Q4

REPORT INFORMATION
  Report Type: Spontaneous
  Country: US (occurrence: US)
  Receive Date: 20181009
  Receipt Date: 20181009
  Transmission Date: 20190205
  Serious: No
  Sender: FDA-Public Use
  Company Number: None

PATIENT
  Age: 27 Year
  Sex: Female
  Weight: 83.25 kg

DRUGS (2)
  1. BISMUTH OXYCHLORIDE [Suspect]
     Active Substance: BISMUTH OXYCHLORIDE
     Indication: PRODUCT FORMULATION ISSUE
     Route: 061
     Dates: start: 20170601, end: 20180430
  2. ACYCLOVIR. [Concomitant]
     Active Substance: ACYCLOVIR

REACTIONS (2)
  - Eye irritation [None]
  - Drug hypersensitivity [None]

NARRATIVE: CASE EVENT DATE: 20180430
